FAERS Safety Report 9435525 (Version 1)
Quarter: 2013Q3

REPORT INFORMATION
  Report Type: Spontaneous
  Country: US (occurrence: None)
  Receive Date: 20130730
  Receipt Date: 20130730
  Transmission Date: 20140515
  Serious: Yes (Other)
  Sender: FDA-Public Use
  Company Number: SYM-2013-07457

PATIENT
  Sex: Male

DRUGS (5)
  1. WELLBUTRIN [Suspect]
     Indication: CHRONIC FATIGUE SYNDROME
     Route: 048
  2. LIPITOR [Suspect]
     Indication: BLOOD CHOLESTEROL INCREASED
     Route: 048
  3. PROTONIX [Suspect]
     Indication: GASTROOESOPHAGEAL REFLUX DISEASE
     Route: 048
  4. COREG (CARVEDILOL) (CARVEDILOL) [Concomitant]
  5. DOMPERIDONE (DOMPERIDONE) (DOMPERIDONE) [Concomitant]

REACTIONS (2)
  - Pancytopenia [None]
  - Off label use [None]
